FAERS Safety Report 21836385 (Version 1)
Quarter: 2023Q1

REPORT INFORMATION
  Report Type: Report from Study
  Country: KR (occurrence: KR)
  Receive Date: 20230109
  Receipt Date: 20230109
  Transmission Date: 20230418
  Serious: Yes (Hospitalization, Other)
  Sender: FDA-Public Use
  Company Number: KR-CELLTRION INC.-2023KR000042

PATIENT

DRUGS (7)
  1. HERZUMA [Suspect]
     Active Substance: TRASTUZUMAB-PKRB
     Indication: Breast cancer
     Dosage: UNK
     Route: 042
     Dates: start: 20220406, end: 20221206
  2. RIBOCICLIB [Suspect]
     Active Substance: RIBOCICLIB
     Indication: Breast cancer
     Dosage: UNK
     Route: 042
     Dates: start: 20220406, end: 20221206
  3. NORVASC [Concomitant]
     Active Substance: AMLODIPINE BESYLATE
     Indication: Hypertension
     Dosage: 5 MILLIGRAM, QD
     Route: 048
     Dates: start: 20191030
  4. ATACAND [Concomitant]
     Active Substance: CANDESARTAN CILEXETIL
     Indication: Hypertension
     Dosage: 8 MILLIGRAM, QD
     Route: 048
     Dates: start: 20191030
  5. DAPAGLIFLOZIN [Concomitant]
     Active Substance: DAPAGLIFLOZIN
     Indication: Diabetes mellitus
     Dosage: 10 MILLIGRAM, QD
     Route: 048
     Dates: start: 20220324
  6. Peniramin inj [Concomitant]
     Indication: Premedication
     Dosage: 1 AMPLE AS NEEDED
     Route: 042
     Dates: start: 20220406
  7. Tacenol 8hours er [Concomitant]
     Indication: Premedication
     Dosage: 1 TAB AS NEEDED
     Route: 048
     Dates: start: 20220406

REACTIONS (2)
  - Multiple fractures [Recovering/Resolving]
  - Intentional dose omission [Unknown]

NARRATIVE: CASE EVENT DATE: 20221227
